FAERS Safety Report 9702916 (Version 3)
Quarter: 2013Q4

REPORT INFORMATION
  Report Type: Report from Study
  Country: FR (occurrence: FR)
  Receive Date: 20131121
  Receipt Date: 20131126
  Transmission Date: 20140711
  Serious: Yes (Death, Other)
  Sender: FDA-Public Use
  Company Number: FR-ROCHE-1299563

PATIENT
  Age: 81 Year
  Sex: Female
  Weight: 60 kg

DRUGS (1)
  1. METHOXY POLYETHYLENE GLYCOL-EPOETIN BETA [Suspect]
     Indication: NEPHROGENIC ANAEMIA
     Route: 065
     Dates: start: 20130731, end: 20131101

REACTIONS (6)
  - Death [Fatal]
  - General physical health deterioration [Not Recovered/Not Resolved]
  - Respiratory failure [Not Recovered/Not Resolved]
  - Asthenia [Not Recovered/Not Resolved]
  - Decreased appetite [Not Recovered/Not Resolved]
  - Activities of daily living impaired [Not Recovered/Not Resolved]
